FAERS Safety Report 7337074-4 (Version None)
Quarter: 2011Q1

REPORT INFORMATION
  Report Type: 
  Country: None (occurrence: None)
  Receive Date: 20110224
  Receipt Date: 20110216
  Transmission Date: 20110831
  Serious: Yes (Death, Hospitalization)
  Sender: FDA-Public Use
  Company Number: 2010AC000062

PATIENT
  Age: 63 Year
  Sex: Female

DRUGS (15)
  1. DIGOXIN [Suspect]
     Dosage: (PO) (0.125 MG; QD; PO)
     Route: 048
     Dates: start: 20061101
  2. DIGOXIN [Suspect]
     Dosage: (PO) (0.125 MG; QD; PO)
     Route: 048
     Dates: start: 20070622
  3. MICARDIS [Concomitant]
  4. LORATADINE [Concomitant]
  5. FUROSEMIDE [Concomitant]
  6. JANUVIA [Concomitant]
  7. METFORMIN HCL [Concomitant]
  8. GLUCOTROL [Concomitant]
  9. VALTREX [Concomitant]
  10. LISINOPRIL [Concomitant]
  11. ALBUTEROL [Concomitant]
  12. POTASSIUM [Concomitant]
  13. COREG [Concomitant]
  14. ADVAIR DISKUS 100/50 [Concomitant]
  15. GLIPIZIDE [Concomitant]

REACTIONS (6)
  - MYOCARDIAL INFARCTION [None]
  - SURGERY [None]
  - VIITH NERVE PARALYSIS [None]
  - LACRIMATION INCREASED [None]
  - MULTIPLE INJURIES [None]
  - ECONOMIC PROBLEM [None]
